FAERS Safety Report 25702121 (Version 1)
Quarter: 2025Q3

REPORT INFORMATION
  Report Type: Spontaneous
  Country: CN (occurrence: CN)
  Receive Date: 20250819
  Receipt Date: 20250819
  Transmission Date: 20251020
  Serious: Yes (Other)
  Sender: PFIZER
  Company Number: CN-PFIZER INC-PV202500099911

PATIENT
  Age: 81 Year
  Sex: Male
  Weight: 60 kg

DRUGS (2)
  1. MEROPENEM [Suspect]
     Active Substance: MEROPENEM
     Indication: Pneumonia
     Dosage: 1 G, 3X/DAY (TID)
     Route: 050
     Dates: start: 20250724, end: 20250803
  2. SODIUM CHLORIDE [Concomitant]
     Active Substance: SODIUM CHLORIDE
     Dates: start: 20250724, end: 20250803

REACTIONS (3)
  - Seizure [Recovering/Resolving]
  - Tremor [Recovering/Resolving]
  - Tic [Recovering/Resolving]

NARRATIVE: CASE EVENT DATE: 20250803
